FAERS Safety Report 6688461-9 (Version None)
Quarter: 2010Q2

REPORT INFORMATION
  Report Type: 
  Country: None (occurrence: None)
  Receive Date: 20100420
  Receipt Date: 20100409
  Transmission Date: 20101027
  Serious: Yes (Other)
  Sender: FDA-Public Use
  Company Number: US-AMGEN-QUU405290

PATIENT
  Sex: Male

DRUGS (2)
  1. ENBREL [Suspect]
     Indication: JUVENILE ARTHRITIS
     Route: 058
     Dates: start: 20100409
  2. METHOTREXATE [Concomitant]
     Route: 048
     Dates: start: 20100122

REACTIONS (2)
  - FATIGUE [None]
  - HYPERSOMNIA [None]
